FAERS Safety Report 20316822 (Version 7)
Quarter: 2023Q1

REPORT INFORMATION
  Report Type: Spontaneous
  Country: NL (occurrence: NL)
  Receive Date: 20220110
  Receipt Date: 20230208
  Transmission Date: 20230418
  Serious: Yes (Other)
  Sender: FDA-Public Use
  Company Number: NL-Shilpa Medicare Limited-SML-NL-2021-01548

PATIENT
  Age: 86 Year
  Sex: Female

DRUGS (17)
  1. ERLOTINIB [Interacting]
     Active Substance: ERLOTINIB
     Indication: Non-small cell lung cancer
     Dosage: 150MG QD, 1HR BEFORE BREAKFAST ON EMPTY STOMACH
     Route: 048
  2. ERLOTINIB [Interacting]
     Active Substance: ERLOTINIB
     Indication: Non-small cell lung cancer metastatic
     Dosage: 100 MG, QD,DOSE REDUCED TO100MG/DAY.
     Route: 065
  3. ERLOTINIB [Interacting]
     Active Substance: ERLOTINIB
     Dosage: UNK, 2 HOURS AFTER DINNER
     Route: 065
  4. SIMVASTATIN [Interacting]
     Active Substance: SIMVASTATIN
     Indication: Product used for unknown indication
     Dosage: 40 MILLIGRAM (1DD1, FOR TEN YEARS)
     Route: 065
  5. SIMVASTATIN [Interacting]
     Active Substance: SIMVASTATIN
     Dosage: 1 DOSAGE FORM, QD
     Route: 065
  6. MINOCYCLINE [Interacting]
     Active Substance: MINOCYCLINE HYDROCHLORIDE
     Indication: Rash pustular
     Dosage: 100 MILLIGRAM ((1DD1, FOR EIGHT MONTHS))
     Route: 065
  7. MINOCYCLINE [Interacting]
     Active Substance: MINOCYCLINE HYDROCHLORIDE
     Indication: Skin toxicity
  8. METOPROLOL [Concomitant]
     Active Substance: METOPROLOL
     Indication: Product used for unknown indication
     Dosage: 50 MG (1 ONCE A DAY FOR TEN YEARS)
     Route: 065
  9. METOPROLOL [Concomitant]
     Active Substance: METOPROLOL
     Dosage: 1 DOSAGE FORM, QD
     Route: 065
  10. ASPIRIN [Concomitant]
     Active Substance: ASPIRIN
     Indication: Product used for unknown indication
     Dosage: 80 MG (1 ONCE A DAY FOR TEN YEARS)
     Route: 065
  11. ASPIRIN [Concomitant]
     Active Substance: ASPIRIN
     Dosage: 1 DOSAGE FORM, QD
     Route: 065
  12. OMEPRAZOLE [Concomitant]
     Active Substance: OMEPRAZOLE
     Indication: Gastrooesophageal reflux disease
     Dosage: 20 MG, QD
     Route: 065
  13. OMEPRAZOLE [Concomitant]
     Active Substance: OMEPRAZOLE
     Dosage: 40 MG (1 ONCE A DAY FOR SEVEN YEARS)
     Route: 065
  14. OMEPRAZOLE [Concomitant]
     Active Substance: OMEPRAZOLE
     Dosage: 20 MG (1 ONCE A DAY FOR SEVEN YEARS)
     Route: 065
  15. OMEPRAZOLE [Concomitant]
     Active Substance: OMEPRAZOLE
     Dosage: 1 DOSAGE FORM, QD
     Route: 065
  16. VITAMIN D [Concomitant]
     Active Substance: VITAMIN D NOS
     Indication: Product used for unknown indication
     Dosage: 800 IU, 1 ONCE A DAY
     Route: 065
  17. DOXYCYCLINE [Concomitant]
     Active Substance: DOXYCYCLINE
     Indication: Product used for unknown indication
     Dosage: 100 MG, 1 ONCE A DAY)
     Route: 065

REACTIONS (7)
  - Loss of personal independence in daily activities [Recovering/Resolving]
  - Skin hyperpigmentation [Recovering/Resolving]
  - Rash pustular [Recovering/Resolving]
  - Fatigue [Recovering/Resolving]
  - Nausea [Recovering/Resolving]
  - Myalgia [Recovered/Resolved]
  - Drug interaction [Unknown]
